FAERS Safety Report 24311911 (Version 2)
Quarter: 2024Q4

REPORT INFORMATION
  Report Type: Spontaneous
  Country: US (occurrence: US)
  Receive Date: 20240912
  Receipt Date: 20241224
  Transmission Date: 20250114
  Serious: Yes (Hospitalization, Other)
  Sender: BLUEPRINT MEDICINES
  Company Number: US-Blueprint Medicines Corporation-4712

PATIENT
  Age: 72 Year
  Sex: Male

DRUGS (1)
  1. AYVAKIT [Suspect]
     Active Substance: AVAPRITINIB
     Indication: Systemic mastocytosis
     Route: 065
     Dates: start: 20240802

REACTIONS (8)
  - Cardiac failure [Unknown]
  - Platelet count decreased [Unknown]
  - Red blood cell count decreased [Unknown]
  - Respiratory rate increased [Unknown]
  - Hyperhidrosis [Unknown]
  - Haematological infection [Unknown]
  - Dysphagia [Unknown]
  - Mastication disorder [Unknown]
